FAERS Safety Report 4399659-7 (Version None)
Quarter: 2004Q3

REPORT INFORMATION
  Report Type: 
  Country: None (occurrence: None)
  Receive Date: 20040713
  Receipt Date: 20040628
  Transmission Date: 20050211
  Serious: Yes (Life-Threatening)
  Sender: FDA-Public Use
  Company Number: JP-JNJFOC-20040300227

PATIENT
  Age: 34 Year
  Sex: Female
  Weight: 50 kg

DRUGS (6)
  1. REMICADE [Suspect]
     Indication: CROHN'S DISEASE
     Dosage: SEE IMAGE
     Route: 041
     Dates: start: 20030428
  2. REMICADE [Suspect]
     Indication: FISTULA
     Dosage: SEE IMAGE
     Route: 041
     Dates: start: 20030428
  3. REMICADE [Suspect]
     Indication: CROHN'S DISEASE
     Dosage: SEE IMAGE
     Route: 041
     Dates: start: 20031217
  4. REMICADE [Suspect]
     Indication: FISTULA
     Dosage: SEE IMAGE
     Route: 041
     Dates: start: 20031217
  5. REMICADE [Suspect]
     Indication: CROHN'S DISEASE
     Dosage: SEE IMAGE
     Route: 041
     Dates: start: 20040106
  6. REMICADE [Suspect]
     Indication: FISTULA
     Dosage: SEE IMAGE
     Route: 041
     Dates: start: 20040106

REACTIONS (4)
  - DRUG INEFFECTIVE [None]
  - DYSPNOEA [None]
  - EYE REDNESS [None]
  - SHOCK [None]
